FAERS Safety Report 6054066-6 (Version None)
Quarter: 2009Q1

REPORT INFORMATION
  Report Type: 
  Country: None (occurrence: None)
  Receive Date: 20090127
  Receipt Date: 20090115
  Transmission Date: 20090719
  Serious: Yes (Hospitalization)
  Sender: FDA-Public Use
  Company Number: DE-ROCHE-608268

PATIENT
  Sex: Female
  Weight: 88 kg

DRUGS (8)
  1. CAPECITABINE [Suspect]
     Indication: BREAST CANCER METASTATIC
     Route: 048
     Dates: start: 20080829, end: 20081017
  2. PACLITAXEL [Suspect]
     Indication: BREAST CANCER METASTATIC
     Route: 042
     Dates: start: 20080829, end: 20081017
  3. EPIRUBICIN [Suspect]
     Indication: BREAST CANCER METASTATIC
     Route: 042
     Dates: start: 20080704, end: 20080815
  4. CYCLOPHOSPHAMIDE [Suspect]
     Indication: BREAST CANCER METASTATIC
     Route: 042
     Dates: start: 20080704, end: 20080815
  5. KEVATRIL [Concomitant]
     Dosage: FREQUENCY: 1X
     Dates: start: 20080829, end: 20081017
  6. DEXAMETHASONE [Concomitant]
     Dosage: FREQUENCY: 1X
     Dates: start: 20080829, end: 20081017
  7. LYRICA [Concomitant]
     Dosage: DOSE: 75, FREQUENCY: 1X
     Dates: start: 20080905, end: 20081020
  8. TAVOR [Concomitant]
     Dosage: FREQUENCY: 1X, DOSE: ILLEGIBLE
     Dates: start: 20080925, end: 20081017

REACTIONS (2)
  - GENERAL PHYSICAL HEALTH DETERIORATION [None]
  - TOOTHACHE [None]
